FAERS Safety Report 6335954-X (Version None)
Quarter: 2009Q3

REPORT INFORMATION
  Report Type: 
  Country: None (occurrence: None)
  Receive Date: 20090831
  Receipt Date: 20090831
  Transmission Date: 20100115
  Serious: Yes (Other)
  Sender: FDA-Public Use
  Company Number: None

PATIENT

DRUGS (2)
  1. DIVALPROEX EXTENDED-RELEASE [Suspect]
     Dates: start: 20090601
  2. DIVALPROX SODIUM [Suspect]
     Dates: start: 20090601

REACTIONS (4)
  - HAEMATOCRIT DECREASED [None]
  - HAEMOGLOBIN DECREASED [None]
  - PLATELET COUNT DECREASED [None]
  - PRODUCT SUBSTITUTION ISSUE [None]
